FAERS Safety Report 9536860 (Version 1)
Quarter: 2013Q3

REPORT INFORMATION
  Report Type: Spontaneous
  Country: US (occurrence: None)
  Receive Date: 20130918
  Receipt Date: 20130918
  Transmission Date: 20140515
  Serious: No
  Sender: FDA-Public Use
  Company Number: None

PATIENT
  Age: 86 Year
  Sex: Female
  Weight: 98.1 kg

DRUGS (1)
  1. TAMSULOSIN [Suspect]
     Indication: PROSTATIC DISORDER
     Route: 048
     Dates: start: 20111027, end: 20111116

REACTIONS (4)
  - Respiratory tract congestion [None]
  - Cough [None]
  - Dyspnoea [None]
  - Wheezing [None]
